FAERS Safety Report 4717390-2 (Version None)
Quarter: 2005Q3

REPORT INFORMATION
  Report Type: 
  Country: None (occurrence: None)
  Receive Date: 20050715
  Receipt Date: 20050702
  Transmission Date: 20060218
  Serious: Yes (Hospitalization, Other)
  Sender: FDA-Public Use
  Company Number: 2005077031

PATIENT
  Age: 81 Year
  Sex: Female
  Weight: 71.2147 kg

DRUGS (4)
  1. CELEBREX [Suspect]
     Indication: ARTHRITIS
     Dosage: 100 MG (100 MG, 1 IN 1 D)
  2. XALATAN [Concomitant]
  3. ZOCOR [Concomitant]
  4. ANTIHYPERTENSIVES (ANTIHYPERTENSIVES) [Concomitant]

REACTIONS (16)
  - ASTHENIA [None]
  - ATRIAL FIBRILLATION [None]
  - ATRIAL FLUTTER [None]
  - ATRIOVENTRICULAR BLOCK [None]
  - BONE PAIN [None]
  - BRADYCARDIA [None]
  - DEPRESSION [None]
  - FEELING ABNORMAL [None]
  - GLAUCOMA [None]
  - HYPERLIPIDAEMIA [None]
  - HYPERTENSION [None]
  - MYALGIA [None]
  - NAUSEA [None]
  - SHOULDER PAIN [None]
  - SICK SINUS SYNDROME [None]
  - VOMITING [None]
